FAERS Safety Report 15222765 (Version 7)
Quarter: 2022Q1

REPORT INFORMATION
  Report Type: Report from Study
  Country: DE (occurrence: DE)
  Receive Date: 20180731
  Receipt Date: 20220324
  Transmission Date: 20220424
  Serious: No
  Sender: FDA-Public Use
  Company Number: DE-SHIRE-DE201827634

PATIENT
  Age: 61 Year
  Sex: Female
  Weight: 51 kg

DRUGS (16)
  1. TEDUGLUTIDE [Suspect]
     Active Substance: TEDUGLUTIDE
     Indication: Short-bowel syndrome
     Dosage: 2.8 MILLIGRAM, Q7WEEKS
     Route: 065
     Dates: start: 20150714, end: 20170918
  2. TEDUGLUTIDE [Suspect]
     Active Substance: TEDUGLUTIDE
     Indication: Short-bowel syndrome
     Dosage: 2.8 MILLIGRAM, Q7WEEKS
     Route: 065
     Dates: start: 20150714, end: 20170918
  3. TEDUGLUTIDE [Suspect]
     Active Substance: TEDUGLUTIDE
     Indication: Short-bowel syndrome
     Dosage: 2.8 MILLIGRAM, Q7WEEKS
     Route: 065
     Dates: start: 20150714, end: 20170918
  4. TEDUGLUTIDE [Suspect]
     Active Substance: TEDUGLUTIDE
     Indication: Short-bowel syndrome
     Dosage: 2.8 MILLIGRAM, Q7WEEKS
     Route: 065
     Dates: start: 20150714, end: 20170918
  5. TEDUGLUTIDE [Suspect]
     Active Substance: TEDUGLUTIDE
     Dosage: 2.6 MILLIGRAM, Q7WEEKS
     Route: 065
     Dates: start: 20171109, end: 201802
  6. TEDUGLUTIDE [Suspect]
     Active Substance: TEDUGLUTIDE
     Dosage: 2.6 MILLIGRAM, Q7WEEKS
     Route: 065
     Dates: start: 20171109, end: 201802
  7. TEDUGLUTIDE [Suspect]
     Active Substance: TEDUGLUTIDE
     Dosage: 2.6 MILLIGRAM, Q7WEEKS
     Route: 065
     Dates: start: 20171109, end: 201802
  8. TEDUGLUTIDE [Suspect]
     Active Substance: TEDUGLUTIDE
     Dosage: 2.6 MILLIGRAM, Q7WEEKS
     Route: 065
     Dates: start: 20171109, end: 201802
  9. TEDUGLUTIDE [Suspect]
     Active Substance: TEDUGLUTIDE
     Dosage: 2.8 MILLIGRAM, Q7WEEKS
     Route: 065
     Dates: start: 201802
  10. TEDUGLUTIDE [Suspect]
     Active Substance: TEDUGLUTIDE
     Dosage: 2.8 MILLIGRAM, Q7WEEKS
     Route: 065
     Dates: start: 201802
  11. TEDUGLUTIDE [Suspect]
     Active Substance: TEDUGLUTIDE
     Dosage: 2.8 MILLIGRAM, Q7WEEKS
     Route: 065
     Dates: start: 201802
  12. TEDUGLUTIDE [Suspect]
     Active Substance: TEDUGLUTIDE
     Dosage: 2.8 MILLIGRAM, Q7WEEKS
     Route: 065
     Dates: start: 201802
  13. PANCRELIPASE [Concomitant]
     Active Substance: PANCRELIPASE
     Indication: Flatulence
     Dosage: 1 DOSAGE FORM, WITH MEALS
     Route: 048
     Dates: start: 20180215
  14. XIFAXAN [Concomitant]
     Active Substance: RIFAXIMIN
     Indication: Gastrointestinal bacterial overgrowth
     Dosage: 550 MILLIGRAM
     Route: 048
     Dates: start: 20171109, end: 201911
  15. POTASSIUM CHLORIDE [Concomitant]
     Active Substance: POTASSIUM CHLORIDE
     Indication: Hypokalaemia
     Dosage: 1000 MILLIGRAM, BID
     Route: 048
     Dates: start: 201709
  16. LEVOFLOXACIN [Concomitant]
     Active Substance: LEVOFLOXACIN
     Indication: Urinary tract infection
     Dosage: 500 MILLIGRAM, QD
     Route: 048
     Dates: start: 201705, end: 201705

REACTIONS (2)
  - Vitamin D deficiency [Recovered/Resolved]
  - Fatigue [Not Recovered/Not Resolved]

NARRATIVE: CASE EVENT DATE: 20180222
